FAERS Safety Report 9551978 (Version 1)
Quarter: 2013Q3

REPORT INFORMATION
  Report Type: Spontaneous
  Country: US (occurrence: None)
  Receive Date: 20130923
  Receipt Date: 20130923
  Transmission Date: 20140515
  Serious: Yes (Other)
  Sender: FDA-Public Use
  Company Number: None

PATIENT
  Age: 71 Year
  Sex: Female

DRUGS (3)
  1. VIGAMOX [Suspect]
     Dosage: ONE DROP IN LEFT EYE, TOPICAL QID
     Route: 061
     Dates: start: 20130910, end: 20130913
  2. VIGAMOX [Suspect]
     Indication: PROPHYLAXIS
     Dosage: ONE DROP IN LEFT EYE, TOPICAL QID
     Route: 061
     Dates: start: 20130910, end: 20130913
  3. PRED FORTE [Concomitant]

REACTIONS (3)
  - Pain in extremity [None]
  - Burning sensation [None]
  - Muscle spasms [None]
